FAERS Safety Report 15239482 (Version 5)
Quarter: 2022Q3

REPORT INFORMATION
  Report Type: Spontaneous
  Country: JP (occurrence: JP)
  Receive Date: 20180803
  Receipt Date: 20220830
  Transmission Date: 20221026
  Serious: Yes (Other)
  Sender: FDA-Public Use
  Company Number: JP-MSD-KLC010022-015

PATIENT
  Age: 34 Year
  Sex: Female
  Weight: 80 kg

DRUGS (20)
  1. KEYTRUDA [Suspect]
     Active Substance: PEMBROLIZUMAB
     Indication: Adenosquamous cell lung cancer
     Dosage: 200 MILLIGRAM, Q3W
     Route: 041
     Dates: start: 20170608, end: 20180313
  2. KEYTRUDA [Suspect]
     Active Substance: PEMBROLIZUMAB
     Dosage: 200 MILLIGRAM, Q3W
     Route: 041
     Dates: start: 20180615, end: 20180706
  3. MAGNESIUM OXIDE [Concomitant]
     Active Substance: MAGNESIUM OXIDE
     Dosage: 660 MG, TID
     Route: 048
  4. SENNA [Concomitant]
     Active Substance: SENNA LEAF\SENNOSIDES\SENNOSIDES A AND B
     Dosage: 80 MILLIGRAM, PRN
     Route: 048
  5. MINOCYCLINE HYDROCHLORIDE [Concomitant]
     Active Substance: MINOCYCLINE HYDROCHLORIDE
     Indication: Prophylaxis
     Dosage: 50 MG, BID
     Route: 048
     Dates: start: 20170608
  6. BRECRUS [Concomitant]
     Dosage: 100 MG, TID
     Route: 048
     Dates: end: 20171201
  7. SALAGEN [Concomitant]
     Active Substance: PILOCARPINE HYDROCHLORIDE
     Dosage: 5.0 MG, TID
     Route: 048
  8. BROMAZEPAM [Concomitant]
     Active Substance: BROMAZEPAM
     Dosage: 2.0 MG, QD
     Route: 048
  9. ROZEREM [Concomitant]
     Active Substance: RAMELTEON
     Dosage: 8.0 MG, QD
     Route: 048
  10. DESYREL [Concomitant]
     Active Substance: TRAZODONE HYDROCHLORIDE
     Dosage: 25.0 MG, QD
     Route: 048
  11. VONOPRAZAN FUMARATE [Concomitant]
     Active Substance: VONOPRAZAN FUMARATE
     Indication: Prophylaxis
     Dosage: 20 MG, QD
     Route: 048
  12. LOXOPROFEN SODIUM [Concomitant]
     Active Substance: LOXOPROFEN SODIUM
     Indication: Adenosquamous cell lung cancer
     Dosage: 60 MG, PRN
     Route: 048
     Dates: end: 20180215
  13. OXYCONTIN [Concomitant]
     Active Substance: OXYCODONE HYDROCHLORIDE
     Indication: Adenosquamous cell lung cancer
     Dosage: 10 MG, BID
     Route: 048
     Dates: end: 20170612
  14. OXYCONTIN [Concomitant]
     Active Substance: OXYCODONE HYDROCHLORIDE
     Dosage: 20 MG, BID
     Route: 048
     Dates: start: 20170613, end: 20170907
  15. OXYCONTIN [Concomitant]
     Active Substance: OXYCODONE HYDROCHLORIDE
     Dosage: 10 MG, BID
     Route: 048
     Dates: start: 20170908, end: 20180227
  16. OXYCONTIN [Concomitant]
     Active Substance: OXYCODONE HYDROCHLORIDE
     Dosage: 20 MG, BID
     Route: 048
     Dates: start: 20180228
  17. OXYCODONE HYDROCHLORIDE [Concomitant]
     Active Substance: OXYCODONE HYDROCHLORIDE
     Indication: Adenosquamous cell lung cancer
     Dosage: 5 MG, PRN
     Route: 048
  18. GUAIAZULENE [Concomitant]
     Active Substance: GUAIAZULENE
     Dosage: UNK
     Route: 061
  19. PREDNISOLONE [Concomitant]
     Active Substance: PREDNISOLONE
     Indication: Adenosquamous cell lung cancer
     Dosage: 1.0 MG, QD
     Route: 048
     Dates: end: 20171110
  20. CALONAL [Concomitant]
     Active Substance: ACETAMINOPHEN
     Indication: Adenosquamous cell lung cancer
     Dosage: 400 MG, QID
     Route: 048
     Dates: start: 20180216, end: 20180404

REACTIONS (18)
  - Oesophageal ulcer [Not Recovered/Not Resolved]
  - Pharyngeal cancer [Unknown]
  - Stomatitis [Recovering/Resolving]
  - Mucosal inflammation [Not Recovered/Not Resolved]
  - Stomatitis radiation [Not Recovered/Not Resolved]
  - Gram stain positive [Unknown]
  - Pyrexia [Recovered/Resolved]
  - Anaemia [Recovered/Resolved]
  - Hypoalbuminaemia [Recovered/Resolved]
  - Blood creatinine increased [Recovered/Resolved]
  - Pyrexia [Recovered/Resolved]
  - Anaemia [Recovered/Resolved]
  - Vomiting [Recovered/Resolved]
  - Nausea [Recovered/Resolved]
  - Pyrexia [Recovered/Resolved]
  - Pyrexia [Unknown]
  - Anaemia [Unknown]
  - Oedema [Recovering/Resolving]

NARRATIVE: CASE EVENT DATE: 20170608
